FAERS Safety Report 7429177-0 (Version None)
Quarter: 2011Q2

REPORT INFORMATION
  Report Type: 
  Country: None (occurrence: None)
  Receive Date: 20110414
  Receipt Date: 20110405
  Transmission Date: 20111010
  Serious: Yes (Death, Hospitalization)
  Sender: FDA-Public Use
  Company Number: KV200900716

PATIENT
  Age: 48 Year
  Sex: Female
  Weight: 55 kg

DRUGS (17)
  1. FENTANYL [Concomitant]
  2. TRAZODONE (TRAZODONE) [Concomitant]
  3. ROPINIROLE [Concomitant]
  4. MORPHINE SULFATE INJ [Concomitant]
  5. HYDRCODONE W/APAP (HYDROCODONE, PARACETAMOL) [Concomitant]
  6. CYCLOBENZAPRINE [Concomitant]
  7. NEURONTIN [Concomitant]
  8. OMEPRAZOLE [Concomitant]
  9. CLINDAMYCIN [Concomitant]
  10. BACITRACIN [Concomitant]
  11. SEROQUEL [Concomitant]
  12. ALPRAZOLAM [Concomitant]
  13. AMITRIPTYLINE (AMITRIPTYLINE) [Concomitant]
  14. NORTRIPTYLINE (NORTRIPTYLINE) [Concomitant]
  15. METHADONE HCL [Concomitant]
  16. MORPHINE SULFATE [Suspect]
     Indication: BACK PAIN
     Dosage: 15 MG, TID, ORAL
     Route: 048
     Dates: start: 20080411, end: 20081026
  17. FOLIC ACID [Concomitant]

REACTIONS (16)
  - CONVULSION [None]
  - ARTERIOSCLEROSIS CORONARY ARTERY [None]
  - GROIN PAIN [None]
  - MYOCARDIAL FIBROSIS [None]
  - CARDIOMEGALY [None]
  - CONDITION AGGRAVATED [None]
  - TOXICITY TO VARIOUS AGENTS [None]
  - WOUND [None]
  - EMPHYSEMA [None]
  - PULMONARY CONGESTION [None]
  - PULMONARY OEDEMA [None]
  - RENAL ARTERIOSCLEROSIS [None]
  - CORONARY ARTERY STENOSIS [None]
  - UNRESPONSIVE TO STIMULI [None]
  - BACK PAIN [None]
  - FALL [None]
